FAERS Safety Report 10070736 (Version 1)
Quarter: 2014Q2

REPORT INFORMATION
  Report Type: Spontaneous
  Country: US (occurrence: US)
  Receive Date: 20140410
  Receipt Date: 20140410
  Transmission Date: 20141212
  Serious: No
  Sender: FDA-Public Use
  Company Number: US-PFIZER INC-2014097325

PATIENT
  Age: 91 Year
  Sex: Male

DRUGS (3)
  1. LIPITOR [Suspect]
     Indication: BLOOD CHOLESTEROL INCREASED
     Dosage: UNK
     Route: 048
  2. SYNTHROID [Suspect]
     Indication: HYPOTHYROIDISM
     Dosage: 50 UG, 1X/DAY
     Route: 048
  3. SYNTHROID [Suspect]
     Dosage: 25 UG, 1X/DAY
     Route: 048

REACTIONS (6)
  - Paraesthesia [Unknown]
  - Feeling abnormal [Unknown]
  - Blood pressure increased [Unknown]
  - Paraesthesia [Unknown]
  - Osteoporosis [Unknown]
  - Muscle disorder [Unknown]
